FAERS Safety Report 18800772 (Version 2)
Quarter: 2021Q1

REPORT INFORMATION
  Report Type: Spontaneous
  Country: US (occurrence: US)
  Receive Date: 20210128
  Receipt Date: 20210128
  Transmission Date: 20210419
  Serious: No
  Sender: FDA-Public Use
  Company Number: US-GALDERMA-US2020037860

PATIENT
  Sex: Female

DRUGS (3)
  1. PROACTIV MD ADAPALENE ACNE TREATMENT [Suspect]
     Active Substance: ADAPALENE
     Indication: ACNE CYSTIC
     Dosage: 0.1%
     Route: 061
     Dates: start: 20200612, end: 20200806
  2. PROACTIV MD DEEP CLEANSING FACE WASH [Concomitant]
     Active Substance: COSMETICS
     Indication: ACNE CYSTIC
     Route: 061
     Dates: start: 20200612, end: 20200806
  3. PROACTIV ADVANCED DAILY OIL CONTROL [Concomitant]
     Active Substance: SALICYLIC ACID
     Indication: ACNE CYSTIC
     Route: 061
     Dates: start: 20200612, end: 20200806

REACTIONS (5)
  - Dry skin [Recovering/Resolving]
  - Scab [Recovering/Resolving]
  - Acne cystic [Recovering/Resolving]
  - Skin exfoliation [Recovering/Resolving]
  - Condition aggravated [Recovering/Resolving]

NARRATIVE: CASE EVENT DATE: 20200720
